FAERS Safety Report 25449486 (Version 1)
Quarter: 2025Q2

REPORT INFORMATION
  Report Type: Report from Study
  Country: GB (occurrence: GB)
  Receive Date: 20250618
  Receipt Date: 20250618
  Transmission Date: 20250716
  Serious: Yes (Other)
  Sender: ABBVIE
  Company Number: GB-ABBVIE-6326958

PATIENT
  Sex: Male

DRUGS (1)
  1. SKYRIZI [Suspect]
     Active Substance: RISANKIZUMAB-RZAA
     Indication: Colitis ulcerative
     Dosage: DOSE- 1 E.A?FOA: SOLUTION FOR INJECTION IN CARTRIDGE
     Route: 058

REACTIONS (3)
  - Leg amputation [Unknown]
  - Skin ulcer [Unknown]
  - Speech disorder [Unknown]
